FAERS Safety Report 8161675-7 (Version None)
Quarter: 2012Q1

REPORT INFORMATION
  Report Type: 
  Country: None (occurrence: None)
  Receive Date: 20120224
  Receipt Date: 20120213
  Transmission Date: 20120608
  Serious: Yes (Hospitalization, Other)
  Sender: FDA-Public Use
  Company Number: US-JNJFOC-20120201038

PATIENT
  Sex: Female
  Weight: 30.1 kg

DRUGS (7)
  1. METRONIDAZOLE [Concomitant]
  2. REMICADE [Suspect]
     Indication: CROHN'S DISEASE
     Route: 042
     Dates: start: 20101218
  3. TACROLIMUS [Concomitant]
  4. PREDNISONE [Concomitant]
  5. REMICADE [Suspect]
     Route: 042
     Dates: start: 20111120
  6. REMICADE [Suspect]
     Route: 042
     Dates: start: 20110118
  7. SOLU-MEDROL [Suspect]
     Indication: PRODUCT USED FOR UNKNOWN INDICATION

REACTIONS (7)
  - SEPSIS [None]
  - PAIN [None]
  - HYPERTENSION [None]
  - CROHN'S DISEASE [None]
  - DEVICE RELATED INFECTION [None]
  - DIARRHOEA HAEMORRHAGIC [None]
  - PANCREATITIS ACUTE [None]
